FAERS Safety Report 6510011-8 (Version None)
Quarter: 2009Q4

REPORT INFORMATION
  Report Type: 
  Country: None (occurrence: None)
  Receive Date: 20091222
  Receipt Date: 20091002
  Transmission Date: 20100525
  Serious: No
  Sender: FDA-Public Use
  Company Number: US-ABBOTT-09P-163-0601218-00

PATIENT

DRUGS (8)
  1. CEFDINIR [Suspect]
     Indication: UPPER RESPIRATORY TRACT INFECTION
     Dates: start: 20090922
  2. METFORMIN HCL [Concomitant]
     Indication: DIABETES MELLITUS
  3. INSULIN [Concomitant]
     Indication: DIABETES MELLITUS
     Route: 058
  4. LIPITOR [Concomitant]
     Indication: BLOOD CHOLESTEROL INCREASED
  5. ENALAPRIL MALEATE [Concomitant]
     Indication: HYPERTENSION
  6. FISH OIL [Concomitant]
     Indication: MEDICAL DIET
  7. ASPIRIN [Concomitant]
     Indication: DRUG USE FOR UNKNOWN INDICATION
     Dosage: HALF A TABLET
  8. VITAMIN D [Concomitant]
     Indication: VITAMIN SUPPLEMENTATION
     Dates: start: 20090101

REACTIONS (1)
  - BLOOD GLUCOSE FLUCTUATION [None]
